FAERS Safety Report 7584670-5 (Version None)
Quarter: 2011Q2

REPORT INFORMATION
  Report Type: 
  Country: None (occurrence: None)
  Receive Date: 20110630
  Receipt Date: 20110621
  Transmission Date: 20111010
  Serious: Yes (Hospitalization)
  Sender: FDA-Public Use
  Company Number: US-ELI_LILLY_AND_COMPANY-US201106007986

PATIENT
  Age: 51 Year
  Sex: Female

DRUGS (1)
  1. FORTEO [Suspect]
     Indication: OSTEOPOROSIS
     Dosage: 20 UG, QD

REACTIONS (7)
  - ABDOMINAL PAIN UPPER [None]
  - HYPERHIDROSIS [None]
  - MUSCULOSKELETAL CHEST PAIN [None]
  - RETCHING [None]
  - BACK PAIN [None]
  - PANCREATITIS ACUTE [None]
  - TREMOR [None]
